FAERS Safety Report 8396555-5 (Version None)
Quarter: 2012Q2

REPORT INFORMATION
  Report Type: 
  Country: None (occurrence: None)
  Receive Date: 20120530
  Receipt Date: 20120521
  Transmission Date: 20120825
  Serious: Yes (Hospitalization)
  Sender: FDA-Public Use
  Company Number: JP-NAPPMUNDI-MAG-2012-0002178

PATIENT
  Sex: Male

DRUGS (3)
  1. LANSOPRAZOLE [Concomitant]
     Route: 048
  2. CELECOXIB [Concomitant]
     Route: 048
  3. BUPRENORPHINE [Suspect]
     Indication: PRODUCT USED FOR UNKNOWN INDICATION
     Dosage: 5 MCG, Q1H
     Route: 062
     Dates: start: 20120514, end: 20120516

REACTIONS (2)
  - NAUSEA [None]
  - INTERSTITIAL LUNG DISEASE [None]
